FAERS Safety Report 18711163 (Version 1)
Quarter: 2021Q1

REPORT INFORMATION
  Report Type: Spontaneous
  Country: ES (occurrence: ES)
  Receive Date: 20210107
  Receipt Date: 20210107
  Transmission Date: 20210419
  Serious: Yes (Hospitalization)
  Sender: FDA-Public Use
  Company Number: ES-ACCORD-213563

PATIENT
  Age: 86 Year
  Sex: Male
  Weight: 65 kg

DRUGS (4)
  1. AZITHROMYCIN ANHYDROUS. [Interacting]
     Active Substance: AZITHROMYCIN ANHYDROUS
     Indication: COVID-19
     Route: 048
     Dates: start: 20200415, end: 20200422
  2. HYDROXYCHLOROQUINE [Suspect]
     Active Substance: HYDROXYCHLOROQUINE
     Indication: COVID-19
     Route: 048
     Dates: start: 20200417, end: 20200421
  3. CEFTRIAXONE. [Interacting]
     Active Substance: CEFTRIAXONE
     Indication: COVID-19
     Route: 042
     Dates: start: 20200418, end: 20200422
  4. LOPINAVIR/RITONAVIR [Interacting]
     Active Substance: LOPINAVIR\RITONAVIR
     Indication: COVID-19
     Route: 048
     Dates: start: 20200417, end: 20200420

REACTIONS (3)
  - Drug interaction [Unknown]
  - Long QT syndrome [Recovered/Resolved]
  - Off label use [Unknown]

NARRATIVE: CASE EVENT DATE: 20200420
